FAERS Safety Report 11155000 (Version 1)
Quarter: 2015Q2

REPORT INFORMATION
  Report Type: Spontaneous
  Country: US (occurrence: None)
  Receive Date: 20150601
  Receipt Date: 20150601
  Transmission Date: 20150821
  Serious: Yes (Life-Threatening, Hospitalization)
  Sender: FDA-Public Use
  Company Number: None

PATIENT
  Age: 42 Year
  Sex: Male
  Weight: 89.5 kg

DRUGS (3)
  1. VANCOMYCIN [Suspect]
     Active Substance: VANCOMYCIN
     Indication: LUNG DISORDER
     Route: 042
     Dates: start: 20150415, end: 20150511
  2. VANCOMYCIN [Suspect]
     Active Substance: VANCOMYCIN
     Indication: CENTRAL NERVOUS SYSTEM LESION
     Route: 042
     Dates: start: 20150415, end: 20150511
  3. VANCOMYCIN 1 GRAM HOSPIRA [Suspect]
     Active Substance: VANCOMYCIN
     Dosage: LOT #48250DD, EXP DATE 01DEC2016

REACTIONS (6)
  - Red man syndrome [None]
  - Malaise [None]
  - Anaphylactic reaction [None]
  - Rash [None]
  - Chest pain [None]
  - Dyspnoea [None]

NARRATIVE: CASE EVENT DATE: 20150511
